FAERS Safety Report 7214094-1 (Version None)
Quarter: 2010Q4

REPORT INFORMATION
  Report Type: 
  Country: None (occurrence: None)
  Receive Date: 20101227
  Receipt Date: 20101221
  Transmission Date: 20110411
  Serious: Yes (Other)
  Sender: FDA-Public Use
  Company Number: GB-1184474

PATIENT

DRUGS (3)
  1. MAXIDEX [Suspect]
     Dosage: OPHTHALMIC
     Route: 047
  2. REVLIMID [Suspect]
     Indication: MULTIPLE MYELOMA
     Dosage: 25 MG QD ORAL
     Route: 048
  3. WARFARIN (WARFARIN TABLET [Suspect]
     Dosage: ORAL
     Route: 048

REACTIONS (2)
  - DYSPNOEA [None]
  - RESPIRATORY DISORDER [None]
